FAERS Safety Report 8836967 (Version 1)
Quarter: 2012Q4

REPORT INFORMATION
  Report Type: 
  Country: AT (occurrence: AT)
  Receive Date: 20121011
  Receipt Date: 20121011
  Transmission Date: 20130627
  Serious: Yes (Hospitalization, Other)
  Sender: FDA-Public Use
  Company Number: AT-US-EMD SERONO, INC.-7166002

PATIENT
  Age: 25 Year
  Sex: Female
  Weight: 75 kg

DRUGS (5)
  1. OVITRELLE [Suspect]
     Indication: OVULATION INDUCTION
  2. PUREGON [Concomitant]
     Indication: OVULATION INDUCTION
  3. PUREGON [Concomitant]
  4. PUREGON [Concomitant]
  5. METRELEF [Concomitant]
     Indication: OVULATION INDUCTION

REACTIONS (2)
  - Adjustment disorder with depressed mood [Unknown]
  - Transverse presentation [Recovered/Resolved]
